FAERS Safety Report 15889538 (Version 2)
Quarter: 2019Q1

REPORT INFORMATION
  Report Type: Spontaneous
  Country: FR (occurrence: FR)
  Receive Date: 20190130
  Receipt Date: 20190327
  Transmission Date: 20190417
  Serious: Yes (Hospitalization, Other)
  Sender: FDA-Public Use
  Company Number: FR-PFIZER INC-2019034838

PATIENT
  Age: 72 Year
  Sex: Female
  Weight: 56 kg

DRUGS (6)
  1. FLUOROURACILE PFIZER [Suspect]
     Active Substance: FLUOROURACIL
     Dosage: 625 MG, CYCLIC
     Route: 040
     Dates: start: 20180717, end: 20181204
  2. ATROPINE. [Suspect]
     Active Substance: ATROPINE
     Dosage: 0.25 MG, CYCLIC
     Route: 058
     Dates: start: 20180717, end: 20181204
  3. CALCIUM FOLINATE [Suspect]
     Active Substance: LEUCOVORIN CALCIUM
     Indication: COLORECTAL CANCER
     Dosage: 620 MG, CYCLIC
     Route: 042
     Dates: start: 20180717, end: 20181204
  4. FLUOROURACILE PFIZER [Suspect]
     Active Substance: FLUOROURACIL
     Indication: COLORECTAL CANCER
     Dosage: 3700 MG, CYCLIC (EVERY 48 HOURS)
     Route: 041
     Dates: start: 20180717, end: 20181204
  5. IRINOTECAN HCL [Suspect]
     Active Substance: IRINOTECAN HYDROCHLORIDE
     Indication: COLORECTAL CANCER
     Dosage: 280 MG, CYCLIC
     Route: 042
     Dates: start: 20180717, end: 20181204
  6. ZALTRAP [Suspect]
     Active Substance: ZIV-AFLIBERCEPT
     Indication: COLORECTAL CANCER
     Dosage: 225 MG, CYCLIC
     Route: 042
     Dates: start: 20180717, end: 20181204

REACTIONS (1)
  - Progressive multifocal leukoencephalopathy [Not Recovered/Not Resolved]

NARRATIVE: CASE EVENT DATE: 20181206
